FAERS Safety Report 9441098 (Version 1)
Quarter: 2013Q3

REPORT INFORMATION
  Report Type: Spontaneous
  Country: DE (occurrence: DE)
  Receive Date: 20130805
  Receipt Date: 20130805
  Transmission Date: 20140515
  Serious: Yes (Life-Threatening, Hospitalization)
  Sender: FDA-Public Use
  Company Number: GXKR2013DE002603

PATIENT
  Sex: 0

DRUGS (5)
  1. OFLOXACIN [Suspect]
     Indication: SEPSIS
     Dosage: DAILY DOSE: 400 MG MILLGRAM(S) EVERY DAYS
     Route: 048
     Dates: start: 20130416, end: 20130419
  2. BISOPROLOL [Concomitant]
     Dosage: 5 MG, UNK
     Route: 048
  3. LORZAAR [Concomitant]
     Route: 048
  4. PRADAXA [Concomitant]
     Dosage: 110 MG, BID
     Route: 048
  5. PANTOZOL [Concomitant]
     Dosage: 20 MG, UNK
     Route: 048

REACTIONS (5)
  - Confusional state [Recovered/Resolved]
  - Delirium [Recovered/Resolved]
  - Illusion [Recovered/Resolved]
  - Personality change [Recovered/Resolved]
  - Suicidal ideation [Recovered/Resolved]
